FAERS Safety Report 5754244-7 (Version None)
Quarter: 2008Q2

REPORT INFORMATION
  Report Type: 
  Country: None (occurrence: None)
  Receive Date: 20080530
  Receipt Date: 20080523
  Transmission Date: 20081010
  Serious: Yes (Hospitalization)
  Sender: FDA-Public Use
  Company Number: RO-ABBOTT-08P-135-0452569-00

PATIENT
  Sex: Male
  Weight: 92 kg

DRUGS (9)
  1. FENOFIBRATE [Suspect]
     Indication: DYSLIPIDAEMIA
     Route: 048
     Dates: start: 20070704
  2. SIMVASTATIN [Concomitant]
     Indication: DYSLIPIDAEMIA
     Route: 048
     Dates: start: 20070704
  3. PRAVASTATIN [Concomitant]
     Indication: DYSLIPIDAEMIA
  4. ACETYLSALICYLIC ACID SRT [Concomitant]
     Indication: PERIPHERAL VASCULAR DISORDER
     Route: 048
     Dates: start: 20050101
  5. TRANDOLAPRIL [Concomitant]
     Indication: HYPERTENSION
     Route: 048
     Dates: start: 20060101
  6. AMLODIPINE [Concomitant]
     Indication: HYPERTENSION
     Route: 048
     Dates: start: 20060101
  7. BISOPROLOL FUMARATE [Concomitant]
     Indication: CARDIAC FAILURE
     Dosage: 1.5 TABLETS DAY
     Route: 048
     Dates: start: 20060101
  8. INDAPAMIDE [Concomitant]
     Indication: HYPERTENSION
     Route: 048
     Dates: start: 20060101
  9. SPIRONOLACTONE [Concomitant]
     Indication: CARDIAC FAILURE
     Route: 048
     Dates: start: 20050514

REACTIONS (1)
  - HOSPITALISATION [None]
